FAERS Safety Report 13312389 (Version 1)
Quarter: 2017Q1

REPORT INFORMATION
  Report Type: Spontaneous
  Country: NO (occurrence: NO)
  Receive Date: 20170309
  Receipt Date: 20170309
  Transmission Date: 20170428
  Serious: Yes (Other)
  Sender: FDA-Public Use
  Company Number: NO-HIKMA PHARMACEUTICALS CO. LTD-2017NO001924

PATIENT

DRUGS (1)
  1. INFLIXIMAB HOSPIRA [Suspect]
     Active Substance: INFLIXIMAB
     Indication: CROHN^S DISEASE
     Dosage: 5 MG/KG, (0, 2, AND 6 WEEKS AND EVERY 8 WEEKS)
     Route: 065

REACTIONS (1)
  - Drug-induced liver injury [Unknown]
